FAERS Safety Report 14387625 (Version 3)
Quarter: 2020Q1

REPORT INFORMATION
  Report Type: Spontaneous
  Country: US (occurrence: US)
  Receive Date: 20180115
  Receipt Date: 20200121
  Transmission Date: 20200409
  Serious: Yes (Other)
  Sender: FDA-Public Use
  Company Number: US-SA-2017SA179714

PATIENT
  Age: 47 Year
  Sex: Female
  Weight: 136 kg

DRUGS (7)
  1. NORVASC [Concomitant]
     Active Substance: AMLODIPINE BESYLATE
     Dosage: UNK
     Dates: start: 20000101
  2. LEVOTHYROXINE. [Concomitant]
     Active Substance: LEVOTHYROXINE
  3. TAXOTERE [Suspect]
     Active Substance: DOCETAXEL
     Indication: BREAST CANCER FEMALE
     Dosage: 180 MG, Q3W
     Route: 042
     Dates: start: 20060802, end: 20060802
  4. TAXOTERE [Suspect]
     Active Substance: DOCETAXEL
     Dosage: 180 MG, Q3W
     Route: 042
     Dates: start: 20061004, end: 20061004
  5. LISINOPRIL. [Concomitant]
     Active Substance: LISINOPRIL
     Dosage: UNK
     Dates: start: 20000101
  6. FLUPHENAZINE [Concomitant]
     Active Substance: FLUPHENAZINE
     Dosage: UNK
     Dates: start: 20070625, end: 2017
  7. ARIMIDEX [Concomitant]
     Active Substance: ANASTROZOLE
     Dosage: UNK UNK, UNK

REACTIONS (6)
  - Pain [Unknown]
  - Impaired quality of life [Unknown]
  - Emotional distress [Unknown]
  - Psychological trauma [Unknown]
  - Anxiety [Unknown]
  - Alopecia [Not Recovered/Not Resolved]

NARRATIVE: CASE EVENT DATE: 20060910
